FAERS Safety Report 21789326 (Version 1)
Quarter: 2022Q4

REPORT INFORMATION
  Report Type: Report from Study
  Country: US (occurrence: US)
  Receive Date: 20221228
  Receipt Date: 20221228
  Transmission Date: 20230112
  Serious: Yes (Hospitalization)
  Sender: FDA-Public Use
  Company Number: US-AMRYT PHARMACEUTICALS DAC-AEGR006180

PATIENT
  Age: 23 Year
  Sex: Male

DRUGS (32)
  1. METRELEPTIN [Suspect]
     Active Substance: METRELEPTIN
     Indication: Acquired generalised lipodystrophy
     Dosage: 2.5 MILLIGRAM, QD
     Dates: start: 20140905
  2. ERGOCALCIFEROL [Concomitant]
     Active Substance: ERGOCALCIFEROL
     Indication: Vitamin D deficiency
     Dosage: 1 CAPSULE (50.000 IU/ML), QW
     Route: 048
     Dates: start: 20170914
  3. MELATONIN [Concomitant]
     Active Substance: MELATONIN
     Indication: Sleep disorder
     Dosage: 3 MILLIGRAM, QD
     Route: 048
     Dates: start: 2009
  4. MORPHINE [Concomitant]
     Active Substance: MORPHINE
     Indication: Arthroscopy
     Dosage: 1.4 MILLIGRAM, PRN
     Route: 042
     Dates: start: 20151104, end: 20151106
  5. MORPHINE [Concomitant]
     Active Substance: MORPHINE
     Indication: Pain
     Dosage: 7.5 MILLIGRAM, PRN
     Route: 048
     Dates: start: 20220805
  6. INSULIN GLARGINE [Concomitant]
     Active Substance: INSULIN GLARGINE
     Indication: Diabetes mellitus
     Dosage: 16 UNITS, BID
     Route: 058
     Dates: start: 20200805, end: 20210802
  7. INSULIN GLARGINE [Concomitant]
     Active Substance: INSULIN GLARGINE
     Dosage: 80 UNITS, QD
     Route: 058
     Dates: start: 20210903, end: 20210903
  8. INSULIN GLARGINE [Concomitant]
     Active Substance: INSULIN GLARGINE
     Dosage: 80 UNITS, BID
     Route: 058
     Dates: start: 20211027, end: 20220111
  9. INSULIN GLARGINE [Concomitant]
     Active Substance: INSULIN GLARGINE
     Dosage: 60 UNITS, QD
     Route: 058
     Dates: start: 20220111, end: 20220228
  10. INSULIN GLARGINE [Concomitant]
     Active Substance: INSULIN GLARGINE
     Dosage: 80 UNITS, QD
     Route: 057
     Dates: start: 20210903, end: 20211012
  11. INSULIN GLARGINE [Concomitant]
     Active Substance: INSULIN GLARGINE
     Dosage: 80 UNITS, BID
     Route: 058
     Dates: start: 20211012, end: 20211027
  12. INSULIN GLARGINE [Concomitant]
     Active Substance: INSULIN GLARGINE
     Dosage: 60 UNITS, QD
     Route: 058
     Dates: start: 20220111, end: 20220228
  13. INSULIN GLARGINE [Concomitant]
     Active Substance: INSULIN GLARGINE
     Dosage: 40 UNITS, BID
     Route: 058
     Dates: start: 20220228, end: 20220318
  14. INSULIN GLARGINE [Concomitant]
     Active Substance: INSULIN GLARGINE
     Dosage: 50 UNK, BID
     Route: 058
     Dates: start: 20220318, end: 20220801
  15. INSULIN GLARGINE [Concomitant]
     Active Substance: INSULIN GLARGINE
     Dosage: 40 UNITS, BID
     Route: 058
     Dates: start: 20220801, end: 20220805
  16. INSULIN GLARGINE [Concomitant]
     Active Substance: INSULIN GLARGINE
     Dosage: 35 UNITS, BID
     Route: 058
     Dates: start: 20220805
  17. RIFAXIMIN [Concomitant]
     Active Substance: RIFAXIMIN
     Indication: Autoimmune hepatitis
     Dosage: 550 MILLIGRAM, BID
     Route: 048
     Dates: start: 20200804
  18. SULFAMETHOXAZOLE\TRIMETHOPRIM [Concomitant]
     Active Substance: SULFAMETHOXAZOLE\TRIMETHOPRIM
     Indication: Platelet count decreased
     Dosage: 1 TABLET (800-160MG) 3 DAYS A WEEK
     Dates: start: 20200807, end: 20210208
  19. SULFAMETHOXAZOLE\TRIMETHOPRIM [Concomitant]
     Active Substance: SULFAMETHOXAZOLE\TRIMETHOPRIM
     Dosage: 1 TABLET (800-160 MG) THREE TIMES A WEEK
     Route: 048
     Dates: start: 20220228
  20. LACTULOSE [Concomitant]
     Active Substance: LACTULOSE
     Indication: Autoimmune hepatitis
     Dosage: 20 GRAM, TID
     Route: 048
     Dates: start: 20200805
  21. FERROUS SULFATE [Concomitant]
     Active Substance: FERROUS SULFATE
     Indication: Pancytopenia
     Dosage: 325 MILLIGRAM, QOD
     Route: 048
     Dates: start: 20201011
  22. INSULIN ASPART [Concomitant]
     Active Substance: INSULIN ASPART
     Indication: Diabetes mellitus
     Dosage: 2 UNITS, TID
     Route: 057
     Dates: start: 20200805, end: 20210408
  23. INSULIN ASPART [Concomitant]
     Active Substance: INSULIN ASPART
     Dosage: 16 UNITS, BID
     Route: 058
     Dates: start: 20210409, end: 20210816
  24. INSULIN ASPART [Concomitant]
     Active Substance: INSULIN ASPART
     Dosage: 30 UNITS, QID
     Route: 058
     Dates: start: 20210817, end: 20211012
  25. INSULIN ASPART [Concomitant]
     Active Substance: INSULIN ASPART
     Dosage: 60 UNITS, TID
     Route: 058
     Dates: start: 20211012, end: 20220228
  26. INSULIN ASPART [Concomitant]
     Active Substance: INSULIN ASPART
     Dosage: 30 UNITS, TID
     Route: 058
     Dates: start: 20220228, end: 20220318
  27. INSULIN ASPART [Concomitant]
     Active Substance: INSULIN ASPART
     Dosage: 45 UNITS, TID
     Route: 058
     Dates: start: 20220318, end: 20220801
  28. INSULIN ASPART [Concomitant]
     Active Substance: INSULIN ASPART
     Dosage: 24 UNITS, TID
     Route: 058
     Dates: start: 20220801
  29. FILGRASTIM [Concomitant]
     Active Substance: FILGRASTIM
     Indication: Neutropenia
     Dosage: 180 MICROGRAM, QD
     Route: 058
     Dates: start: 20210108, end: 20211008
  30. FILGRASTIM [Concomitant]
     Active Substance: FILGRASTIM
     Dosage: 300 MICROGRAM, QD
     Route: 058
     Dates: start: 20211009
  31. INSULIN NOS [Concomitant]
     Active Substance: INSULIN NOS
     Indication: Blood glucose fluctuation
     Dosage: 0 UNK, CONTINOUS
     Route: 042
     Dates: start: 20221109, end: 20221113
  32. HUMALOG [Concomitant]
     Active Substance: INSULIN LISPRO
     Indication: Diabetes mellitus
     Dosage: 6 UNITS, QID
     Route: 058
     Dates: start: 20221111, end: 20221114

REACTIONS (1)
  - Hepatic encephalopathy [Not Recovered/Not Resolved]

NARRATIVE: CASE EVENT DATE: 20221217
